FAERS Safety Report 6684504 (Version 2)
Quarter: 2013Q4

REPORT INFORMATION
  Report Type: Spontaneous
  Country: US (occurrence: US)
  Receive Date: 20080626
  Receipt Date: 20131204
  Transmission Date: 20140711
  Serious: Yes (Hospitalization, Other)
  Sender: FDA-Public Use
  Company Number: US-ASTRAZENECA-2008UW04205

PATIENT
  Age: 81 Year
  Sex: Male
  Weight: 101.2 kg

DRUGS (12)
  1. PULMICORT RESPULES [Suspect]
     Indication: ASTHMA
     Route: 055
  2. PULMICORT RESPULES [Suspect]
     Indication: CHRONIC OBSTRUCTIVE PULMONARY DISEASE
     Route: 055
  3. PULMICORT RESPULES [Suspect]
     Indication: ASTHMA
     Route: 055
  4. PULMICORT RESPULES [Suspect]
     Indication: CHRONIC OBSTRUCTIVE PULMONARY DISEASE
     Route: 055
  5. SYMBICORT PMDI [Suspect]
     Route: 055
     Dates: end: 20131114
  6. LISINOPRIL [Suspect]
     Indication: BLOOD PRESSURE ABNORMAL
     Dosage: 20 MG IN THE MORNING AND 20 MG AT NIGHT
     Route: 048
  7. ALBUTEROL [Suspect]
     Route: 065
  8. ATROVENT [Concomitant]
     Dosage: QID
     Route: 055
  9. LASIX [Concomitant]
     Indication: FLUID REPLACEMENT
  10. WARFARIN [Concomitant]
  11. XOPENEX [Concomitant]
     Dosage: 1.25MG/3ML
  12. OXYGEN [Concomitant]

REACTIONS (28)
  - Atrial fibrillation [Unknown]
  - Transient ischaemic attack [Unknown]
  - Dyspnoea [Unknown]
  - Arrhythmia [Unknown]
  - Chronic respiratory failure [Unknown]
  - Aphonia [Not Recovered/Not Resolved]
  - Myocardial infarction [Unknown]
  - Lung disorder [Unknown]
  - Asthma [Unknown]
  - Dyspnoea [Not Recovered/Not Resolved]
  - Heart rate increased [Unknown]
  - Cardiac disorder [Unknown]
  - Joint injury [Not Recovered/Not Resolved]
  - Exercise tolerance decreased [Not Recovered/Not Resolved]
  - Cataract [Unknown]
  - Corrective lens user [Unknown]
  - Gastrooesophageal reflux disease [Not Recovered/Not Resolved]
  - Vision blurred [Unknown]
  - Dysphagia [Unknown]
  - Dyspnoea [Unknown]
  - Malaise [Unknown]
  - Blood cholesterol abnormal [Unknown]
  - Dry mouth [Recovering/Resolving]
  - Wheezing [Unknown]
  - Cough [Unknown]
  - Intentional drug misuse [Unknown]
  - Off label use [Recovered/Resolved]
  - Intentional drug misuse [Unknown]
